FAERS Safety Report 4332859-0 (Version None)
Quarter: 2004Q1

REPORT INFORMATION
  Report Type: 
  Country: None (occurrence: None)
  Receive Date: 20040330
  Receipt Date: 20040315
  Transmission Date: 20041129
  Serious: Yes (Other)
  Sender: FDA-Public Use
  Company Number: US-JNJFOC-20040201690

PATIENT
  Age: 54 Year
  Sex: Female

DRUGS (3)
  1. REMICADE [Suspect]
     Indication: RHEUMATOID ARTHRITIS
     Dosage: SEE IMAGE
     Route: 042
     Dates: start: 20030101, end: 20030101
  2. METHOTREXDATE (METHOTREXATE) [Concomitant]
  3. PLAQUENILL (HYDROXYCHLOROQUINE PHOSPHATE) [Concomitant]

REACTIONS (4)
  - ASTHENIA [None]
  - FACIAL PALSY [None]
  - HEADACHE [None]
  - SPONDYLOSIS [None]
